FAERS Safety Report 16656600 (Version 1)
Quarter: 2019Q3

REPORT INFORMATION
  Report Type: Spontaneous
  Country: US (occurrence: US)
  Receive Date: 20190801
  Receipt Date: 20190801
  Transmission Date: 20191004
  Serious: No
  Sender: FDA-Public Use
  Company Number: US-PFIZER INC-2019164179

PATIENT
  Age: 77 Year
  Sex: Male

DRUGS (2)
  1. LYRICA [Suspect]
     Active Substance: PREGABALIN
     Indication: DIABETIC NEUROPATHY
     Dosage: 25 MG, 3X/DAY
     Route: 048
     Dates: start: 2018
  2. LYRICA [Suspect]
     Active Substance: PREGABALIN
     Indication: NEURALGIA
     Dosage: 25 MG, FOUR TIMES A DAY (TOOK FOUR 25 MG CAPSULES IN ONE DAY FOR A FEW WEEKS)

REACTIONS (3)
  - Incorrect dose administered [Unknown]
  - Intentional product use issue [Unknown]
  - Pain [Unknown]
